FAERS Safety Report 5015285-0 (Version None)
Quarter: 2006Q2

REPORT INFORMATION
  Report Type: 
  Country: None (occurrence: None)
  Receive Date: 20060601
  Receipt Date: 20060525
  Transmission Date: 20061013
  Serious: Yes (Hospitalization)
  Sender: FDA-Public Use
  Company Number: US-BRISTOL-MYERS SQUIBB COMPANY-13390703

PATIENT
  Age: 66 Year
  Sex: Male
  Weight: 115 kg

DRUGS (4)
  1. CYTOXAN [Suspect]
     Indication: BREAST CANCER METASTATIC
     Route: 042
     Dates: start: 20060425, end: 20060425
  2. ADRIAMYCIN PFS [Suspect]
     Indication: BREAST CANCER
     Route: 042
     Dates: start: 20060428, end: 20060428
  3. ABRAXANE [Suspect]
     Indication: BREAST CANCER
     Route: 042
     Dates: start: 20060425, end: 20060425
  4. PROCRIT [Suspect]
     Indication: ANAEMIA OF MALIGNANT DISEASE
     Route: 058
     Dates: start: 20060501, end: 20060501

REACTIONS (3)
  - CARDIAC FAILURE CONGESTIVE [None]
  - SINUS TACHYCARDIA [None]
  - SUPRAVENTRICULAR TACHYCARDIA [None]
